FAERS Safety Report 7374410-7 (Version None)
Quarter: 2011Q1

REPORT INFORMATION
  Report Type: 
  Country: None (occurrence: None)
  Receive Date: 20110325
  Receipt Date: 20110321
  Transmission Date: 20110831
  Serious: Yes (Hospitalization, Congenital Anomaly, Other)
  Sender: FDA-Public Use
  Company Number: US-PFIZER INC-2010092587

PATIENT
  Sex: Female
  Weight: 4 kg

DRUGS (3)
  1. ZOLOFT [Suspect]
     Dosage: 50 MG, DAILY
     Route: 064
     Dates: start: 20020101
  2. ZOLOFT [Suspect]
     Dosage: 50 MG, DAILY
     Dates: start: 20070801, end: 20100114
  3. ZOLOFT [Suspect]
     Dosage: 100 MG, DAILY
     Dates: end: 20070801

REACTIONS (26)
  - PATENT DUCTUS ARTERIOSUS [None]
  - LEFT VENTRICULAR HYPERTROPHY [None]
  - PULMONARY CONGESTION [None]
  - FAILURE TO THRIVE [None]
  - PNEUMOMEDIASTINUM [None]
  - ATRIAL SEPTAL DEFECT [None]
  - RESPIRATORY DISTRESS [None]
  - HYPOPLASTIC RIGHT HEART SYNDROME [None]
  - PULMONARY ARTERY STENOSIS CONGENITAL [None]
  - JAUNDICE NEONATAL [None]
  - GASTROOESOPHAGEAL REFLUX DISEASE [None]
  - PULMONARY VALVE DISEASE [None]
  - VENTRICULAR SEPTAL DEFECT [None]
  - CARDIOMEGALY [None]
  - CYANOSIS [None]
  - HYPOXIA [None]
  - DRUG EXPOSURE DURING PREGNANCY [None]
  - TRANSPOSITION OF THE GREAT VESSELS [None]
  - CARDIAC FAILURE CONGESTIVE [None]
  - PULMONARY HYPERTENSION [None]
  - FEEDING DISORDER NEONATAL [None]
  - ATELECTASIS [None]
  - DYSPHAGIA [None]
  - INTRACARDIAC THROMBUS [None]
  - HEART DISEASE CONGENITAL [None]
  - NEONATAL TACHYPNOEA [None]
